FAERS Safety Report 9168525 (Version 2)
Quarter: 2013Q2

REPORT INFORMATION
  Report Type: Spontaneous
  Country: FR (occurrence: FR)
  Receive Date: 20130318
  Receipt Date: 20130422
  Transmission Date: 20140414
  Serious: Yes (Other)
  Sender: FDA-Public Use
  Company Number: FR-B.I. PHARMACEUTICALS,INC./RIDGEFIELD-2013-FF-00725FF

PATIENT
  Age: 74 Year
  Sex: Female
  Weight: 177 kg

DRUGS (6)
  1. PRADAXA [Suspect]
     Indication: ATRIAL FIBRILLATION
     Dosage: 300 MG
     Route: 048
     Dates: start: 20121229
  2. BISOPROLOL [Suspect]
     Indication: ATRIAL FIBRILLATION
     Route: 048
     Dates: start: 20121229
  3. FLECAINE [Suspect]
     Dosage: 100 MG
     Dates: start: 20130201
  4. FENOFIBRATE [Concomitant]
     Route: 048
     Dates: start: 2006
  5. FUROSEMIDE [Concomitant]
     Route: 048
     Dates: start: 2006
  6. LEVOTHYROX [Concomitant]
     Dosage: 100 MCG
     Route: 048
     Dates: start: 2002

REACTIONS (1)
  - Transient ischaemic attack [Recovered/Resolved]
